FAERS Safety Report 4358933-0 (Version None)
Quarter: 2004Q2

REPORT INFORMATION
  Report Type: 
  Country: None (occurrence: None)
  Receive Date: 20040512
  Receipt Date: 20040426
  Transmission Date: 20050107
  Serious: Yes (Death, Life-Threatening, Hospitalization, Other)
  Sender: FDA-Public Use
  Company Number: US_0404102573

PATIENT
  Age: 42 Year
  Sex: Female

DRUGS (7)
  1. SARAFEM [Suspect]
     Indication: DEPRESSION
     Dates: start: 20030818, end: 20030908
  2. NICOTINE POLACRILEX [Concomitant]
  3. HYZAAR [Concomitant]
  4. METOPROLOL SUCCINATE [Concomitant]
  5. CALCIUM CITRATE [Concomitant]
  6. VENLAFAXINE HCL [Concomitant]
  7. DIPHENHYDRAMINE HCL [Concomitant]

REACTIONS (9)
  - BLOOD PRESSURE INCREASED [None]
  - BRAIN DEATH [None]
  - CHOLECYSTECTOMY [None]
  - COMA [None]
  - DEPRESSION [None]
  - HAEMORRHAGE INTRACRANIAL [None]
  - HEADACHE [None]
  - HYPERSENSITIVITY [None]
  - RUPTURED CEREBRAL ANEURYSM [None]
